FAERS Safety Report 17997093 (Version 2)
Quarter: 2020Q3

REPORT INFORMATION
  Report Type: Report from Study
  Country: IT (occurrence: IT)
  Receive Date: 20200709
  Receipt Date: 20200721
  Transmission Date: 20201103
  Serious: Yes (Hospitalization, Other)
  Sender: FDA-Public Use
  Company Number: IT-AUROBINDO-AUR-APL-2020-033708

PATIENT
  Age: 69 Year
  Sex: Female

DRUGS (1)
  1. ALENDRONIC ACID TABLETS [Suspect]
     Active Substance: ALENDRONIC ACID
     Indication: OSTEOPOROSIS
     Dosage: UNK
     Route: 048

REACTIONS (3)
  - Osteonecrosis of jaw [Recovering/Resolving]
  - Wound complication [Recovered/Resolved]
  - Dermal sinus [Recovered/Resolved]
